FAERS Safety Report 7252524-X (Version None)
Quarter: 2011Q1

REPORT INFORMATION
  Report Type: 
  Country: None (occurrence: None)
  Receive Date: 20110129
  Receipt Date: 20100113
  Transmission Date: 20110831
  Serious: No
  Sender: FDA-Public Use
  Company Number: US-ABBOTT-10P-163-0619820-00

PATIENT
  Sex: Male

DRUGS (1)
  1. HUMIRA [Suspect]
     Indication: CROHN'S DISEASE
     Route: 058
     Dates: start: 20090519, end: 20090929

REACTIONS (6)
  - ANXIETY [None]
  - ARTHRALGIA [None]
  - ACNE [None]
  - CONFUSIONAL STATE [None]
  - MEMORY IMPAIRMENT [None]
  - HEADACHE [None]
